FAERS Safety Report 4813587-1 (Version None)
Quarter: 2005Q4

REPORT INFORMATION
  Report Type: 
  Country: None (occurrence: None)
  Receive Date: 20051028
  Receipt Date: 20050301
  Transmission Date: 20060501
  Serious: No
  Sender: FDA-Public Use
  Company Number: US-GLAXOSMITHKLINE-A0547768A

PATIENT
  Age: 79 Year
  Sex: Male

DRUGS (5)
  1. ADVAIR DISKUS 100/50 [Suspect]
     Indication: CHRONIC OBSTRUCTIVE PULMONARY DISEASE
     Dosage: 1PUFF TWICE PER DAY
     Route: 055
     Dates: start: 20050221
  2. ALBUTEROL [Concomitant]
  3. TOPROL-XL [Concomitant]
  4. ISOSORBIDE [Concomitant]
  5. LORATADINE [Concomitant]

REACTIONS (2)
  - APHONIA [None]
  - DRY MOUTH [None]
